FAERS Safety Report 24285451 (Version 1)
Quarter: 2024Q3

REPORT INFORMATION
  Report Type: Spontaneous
  Country: IT (occurrence: IT)
  Receive Date: 20240905
  Receipt Date: 20240905
  Transmission Date: 20241017
  Serious: Yes (Hospitalization, Other)
  Sender: MYLAN
  Company Number: IT-SA-SAC20240821000033

PATIENT
  Age: 74 Year
  Sex: Male
  Weight: 85 kg

DRUGS (13)
  1. OXALIPLATIN [Suspect]
     Active Substance: OXALIPLATIN
     Indication: Colon cancer
     Dosage: 129.85 MILLIGRAM, BIWEEKLY
     Route: 042
     Dates: start: 20210623, end: 20211123
  2. CETUXIMAB [Suspect]
     Active Substance: CETUXIMAB
     Indication: Colon cancer
     Dosage: 1040 MILLIGRAM, BIWEEKLY
     Route: 042
     Dates: start: 20210623
  3. FLUOROURACIL [Suspect]
     Active Substance: FLUOROURACIL
     Indication: Colon cancer
     Dosage: 832 MILLIGRAM, BIWEEKLY
     Route: 042
     Dates: start: 20210623
  4. FLUOROURACIL [Suspect]
     Active Substance: FLUOROURACIL
     Dosage: 3943.68 MILLIGRAM, BIWEEKLY
     Route: 042
     Dates: start: 20240623
  5. ENCORAFENIB [Suspect]
     Active Substance: ENCORAFENIB
     Indication: Colon cancer
     Dosage: 300 MILLIGRAM, QD
     Route: 048
     Dates: start: 20210623
  6. LEUCOVORIN CALCIUM [Suspect]
     Active Substance: LEUCOVORIN CALCIUM
     Indication: Colon cancer
     Dosage: 832 MILLIGRAM, BIWEEKLY
     Route: 042
     Dates: start: 20210623
  7. UREA [Concomitant]
     Active Substance: UREA
     Indication: Palmar-plantar erythrodysaesthesia syndrome
     Dosage: UNK
     Route: 065
  8. SILODOSIN [Concomitant]
     Active Substance: SILODOSIN
     Indication: Prostate cancer
     Dosage: UNK
     Route: 065
  9. PRADAXA [Concomitant]
     Active Substance: DABIGATRAN ETEXILATE MESYLATE
     Indication: Thrombosis prophylaxis
     Dosage: UNK
     Route: 065
  10. ASSONAL [Concomitant]
     Indication: Paraesthesia
     Dosage: UNK
     Route: 065
  11. LANSOPRAZOLE [Concomitant]
     Active Substance: LANSOPRAZOLE
     Indication: Prophylaxis
     Dosage: UNK
     Route: 065
  12. SODIUM BICARBONATE [Concomitant]
     Active Substance: SODIUM BICARBONATE
     Indication: Mucosal inflammation
     Dosage: UNK
     Route: 065
  13. FINASTERIDE [Concomitant]
     Active Substance: FINASTERIDE
     Indication: Prostate cancer
     Dosage: UNK
     Route: 065

REACTIONS (2)
  - Bladder transitional cell carcinoma recurrent [Recovered/Resolved]
  - Second primary malignancy [Recovered/Resolved]

NARRATIVE: CASE EVENT DATE: 20240805
